FAERS Safety Report 8886938 (Version 1)
Quarter: 2012Q4

REPORT INFORMATION
  Report Type: 
  Country: MX (occurrence: MX)
  Receive Date: 20121105
  Receipt Date: 20121105
  Transmission Date: 20130627
  Serious: Yes (Other)
  Sender: FDA-Public Use
  Company Number: PHHY2012MX100154

PATIENT
  Age: 74 Year
  Sex: Male

DRUGS (3)
  1. TRILEPTAL [Suspect]
     Indication: EPILEPSY
     Dosage: 1 DF, daily
     Dates: start: 20121002
  2. TRILEPTAL [Suspect]
     Dosage: 1.5 DF, daily
     Dates: start: 20121006, end: 20121024
  3. LYRICA [Concomitant]
     Indication: TRIGEMINAL NERVE DISORDER
     Dosage: 1 DF, daily
     Dates: start: 20121002

REACTIONS (3)
  - Memory impairment [Unknown]
  - Abasia [Unknown]
  - Trigeminal nerve disorder [Unknown]
